FAERS Safety Report 6087539-0 (Version None)
Quarter: 2009Q1

REPORT INFORMATION
  Report Type: 
  Country: None (occurrence: None)
  Receive Date: 20090223
  Receipt Date: 20090212
  Transmission Date: 20090719
  Serious: Yes (Other)
  Sender: FDA-Public Use
  Company Number: US-PFIZER INC-2008025870

PATIENT
  Sex: Female
  Weight: 92.517 kg

DRUGS (8)
  1. CHANTIX [Suspect]
     Indication: SMOKING CESSATION THERAPY
     Dosage: 0.5 MG, 1X/DAY
     Route: 048
     Dates: start: 20080114, end: 20080201
  2. MICARDIS [Concomitant]
  3. BUPROPION HYDROCHLORIDE [Concomitant]
  4. OXYBUTYNIN CHLORIDE [Concomitant]
  5. VITAMINS [Concomitant]
  6. MOTRIN [Concomitant]
  7. OXYGEN [Concomitant]
  8. DRUG, UNSPECIFIED [Concomitant]
     Dosage: UNK

REACTIONS (6)
  - BRONCHITIS [None]
  - CONSTIPATION [None]
  - DEPRESSION [None]
  - NAUSEA [None]
  - NIGHTMARE [None]
  - WEIGHT DECREASED [None]
